FAERS Safety Report 24849713 (Version 1)
Quarter: 2025Q1

REPORT INFORMATION
  Report Type: Spontaneous
  Country: CN (occurrence: CN)
  Receive Date: 20250116
  Receipt Date: 20250116
  Transmission Date: 20250409
  Serious: Yes (Other)
  Sender: PFIZER
  Company Number: CN-PFIZER INC-PV202500005343

PATIENT
  Age: 15 Year
  Sex: Female
  Weight: 66.5 kg

DRUGS (1)
  1. METHOTREXATE SODIUM [Suspect]
     Active Substance: METHOTREXATE SODIUM
     Indication: Acute lymphocytic leukaemia
     Dosage: 5 G, 1X/DAY (HIGH DOSE)
     Route: 041
     Dates: start: 20241211, end: 20241212

REACTIONS (3)
  - Nausea [Recovering/Resolving]
  - Blood creatinine increased [Recovering/Resolving]
  - Chemotherapeutic drug level increased [Recovering/Resolving]

NARRATIVE: CASE EVENT DATE: 20241213
